FAERS Safety Report 20962812 (Version 1)
Quarter: 2022Q2

REPORT INFORMATION
  Report Type: Spontaneous
  Country: US (occurrence: None)
  Receive Date: 20220615
  Receipt Date: 20220615
  Transmission Date: 20220721
  Serious: No
  Sender: FDA-Public Use
  Company Number: US-MDD US Operations-MDD202110-002042

PATIENT
  Age: 58 Year
  Sex: Female

DRUGS (5)
  1. APOKYN [Suspect]
     Active Substance: APOMORPHINE HYDROCHLORIDE
     Indication: Dystonia
     Dosage: NOT PROVIDED
     Dates: start: 20180516
  2. APOKYN [Suspect]
     Active Substance: APOMORPHINE HYDROCHLORIDE
     Indication: Parkinson^s disease
  3. SINEMET [Concomitant]
     Active Substance: CARBIDOPA\LEVODOPA
     Dosage: NOT PROVIDED
     Route: 048
  4. BENADRYL [Concomitant]
     Active Substance: DIPHENHYDRAMINE HYDROCHLORIDE
     Dosage: 25-50 MG
  5. VALIUM [Concomitant]
     Active Substance: DIAZEPAM
     Dosage: 0.5-1 MG

REACTIONS (1)
  - Therapy non-responder [Unknown]
